FAERS Safety Report 15048529 (Version 2)
Quarter: 2018Q2

REPORT INFORMATION
  Report Type: Spontaneous
  Country: US (occurrence: US)
  Receive Date: 20180622
  Receipt Date: 20180627
  Transmission Date: 20180711
  Serious: Yes (Other)
  Sender: FDA-Public Use
  Company Number: US-AMGEN-USASL2018083078

PATIENT
  Sex: Male

DRUGS (1)
  1. ENBREL [Suspect]
     Active Substance: ETANERCEPT
     Indication: ANKYLOSING SPONDYLITIS
     Dosage: 25 MG, APPROXIMATELY EVERY 3 WEEKS
     Route: 065
     Dates: start: 2003

REACTIONS (2)
  - Ankylosing spondylitis [Unknown]
  - Intentional product misuse [Unknown]
